FAERS Safety Report 9694578 (Version 1)
Quarter: 2013Q4

REPORT INFORMATION
  Report Type: Spontaneous
  Country: US (occurrence: US)
  Receive Date: 20131118
  Receipt Date: 20131118
  Transmission Date: 20140711
  Serious: Yes (Other)
  Sender: FDA-Public Use
  Company Number: US-JNJFOC-20131103747

PATIENT
  Age: 62 Year
  Sex: Female

DRUGS (8)
  1. CALCIUM CARBONATE [Suspect]
     Indication: BLOOD CALCIUM
     Route: 048
  2. CALCITRIOL [Suspect]
     Indication: BLOOD PARATHYROID HORMONE
     Route: 065
  3. CALCITRIOL [Suspect]
     Indication: BLOOD PARATHYROID HORMONE
     Route: 065
     Dates: start: 201010
  4. CALCITRIOL [Suspect]
     Indication: HYPOCALCAEMIA
     Route: 065
     Dates: start: 201010
  5. CALCITRIOL [Suspect]
     Indication: HYPOCALCAEMIA
     Route: 065
  6. LANTHANUM CARBONATE [Concomitant]
     Indication: PRODUCT USED FOR UNKNOWN INDICATION
     Route: 065
  7. PARICALCITOL [Concomitant]
     Indication: PRODUCT USED FOR UNKNOWN INDICATION
     Route: 042
  8. CINACALCET [Concomitant]
     Indication: PRODUCT USED FOR UNKNOWN INDICATION
     Route: 065

REACTIONS (1)
  - Calciphylaxis [Recovered/Resolved]
